FAERS Safety Report 10427636 (Version 1)
Quarter: 2014Q3

REPORT INFORMATION
  Report Type: Spontaneous
  Country: JP (occurrence: JP)
  Receive Date: 20140903
  Receipt Date: 20140903
  Transmission Date: 20150326
  Serious: Yes (Death)
  Sender: FDA-Public Use
  Company Number: PHHY2002JP003044

PATIENT
  Age: 55 Year
  Sex: Male

DRUGS (1)
  1. GLIVEC [Suspect]
     Active Substance: IMATINIB MESYLATE
     Indication: CHRONIC MYELOID LEUKAEMIA
     Dosage: 200 MG, UNK
     Dates: start: 20020206

REACTIONS (6)
  - Renal failure chronic [Fatal]
  - Nausea [Unknown]
  - Rash generalised [Unknown]
  - Anaemia [Unknown]
  - Myalgia [Unknown]
  - Neutropenia [Unknown]
